FAERS Safety Report 8306099-4 (Version None)
Quarter: 2012Q2

REPORT INFORMATION
  Report Type: 
  Country: None (occurrence: None)
  Receive Date: 20120423
  Receipt Date: 20120413
  Transmission Date: 20120825
  Serious: Yes (Hospitalization)
  Sender: FDA-Public Use
  Company Number: ES-PFIZER INC-2012010015

PATIENT
  Age: 63 Year
  Sex: Male
  Weight: 61 kg

DRUGS (6)
  1. OMEPRAZOLE [Concomitant]
     Indication: PROPHYLAXIS AGAINST GASTROINTESTINAL ULCER
     Dosage: 20 (UNKNOWN UNITS)
     Route: 048
  2. BISOPROLOL [Concomitant]
     Indication: HYPERTENSION
     Dosage: 2.5 MG, 2X/DAY
     Route: 048
  3. AXITINIB [Suspect]
     Dosage: 5 MG, 2X/DAY
     Dates: start: 20120102, end: 20120112
  4. COZAAR [Concomitant]
     Indication: HYPERTENSION
     Dosage: 50 MG, UNK
     Route: 048
     Dates: start: 20110819, end: 20120110
  5. ATORVASTATIN [Concomitant]
     Indication: HYPERCHOLESTEROLAEMIA
     Dosage: 10 (UNKNOWN UNITS)
     Route: 048
  6. ZOLPIDEM [Concomitant]
     Indication: INSOMNIA
     Dosage: 10 (UNKNOWN UNITS)
     Route: 048
     Dates: start: 20120112

REACTIONS (1)
  - ENCEPHALOPATHY [None]
